FAERS Safety Report 23828310 (Version 1)
Quarter: 2024Q2

REPORT INFORMATION
  Report Type: Spontaneous
  Country: US (occurrence: US)
  Receive Date: 20240508
  Receipt Date: 20240508
  Transmission Date: 20240715
  Serious: No
  Sender: FDA-Public Use
  Company Number: US-009507513-2404USA008854

PATIENT
  Age: 76 Year
  Sex: Female

DRUGS (6)
  1. EMEND [Suspect]
     Active Substance: APREPITANT
     Indication: Eczema
     Dosage: UNK
     Route: 048
  2. EMEND [Suspect]
     Active Substance: APREPITANT
     Indication: Rash pruritic
  3. CLOBETASOL [Concomitant]
     Active Substance: CLOBETASOL
     Indication: Eczema
     Dosage: UNDER WET WRAP OCCLUSION FOR THE BODY, TWICE DAILY
     Route: 061
  4. CLOBETASOL [Concomitant]
     Active Substance: CLOBETASOL
     Indication: Rash pruritic
  5. TRIAMCINOLONE [Concomitant]
     Active Substance: TRIAMCINOLONE
     Indication: Eczema
     Dosage: FOR THE FACE TWICE DAILY
     Route: 061
  6. TRIAMCINOLONE [Concomitant]
     Active Substance: TRIAMCINOLONE
     Indication: Rash pruritic

REACTIONS (1)
  - Product use in unapproved indication [Unknown]
